FAERS Safety Report 23547452 (Version 1)
Quarter: 2024Q1

REPORT INFORMATION
  Report Type: Other
  Country: ES (occurrence: ES)
  Receive Date: 20240221
  Receipt Date: 20240221
  Transmission Date: 20240410
  Serious: Yes (Death, Hospitalization)
  Sender: FDA-Public Use
  Company Number: ES-ALVOGEN-2024093099

PATIENT

DRUGS (3)
  1. VENLAFAXINE [Suspect]
     Active Substance: VENLAFAXINE HYDROCHLORIDE
     Indication: Suicide attempt
  2. TOPIRAMATE [Suspect]
     Active Substance: TOPIRAMATE
     Indication: Suicide attempt
  3. DIAZEPAM [Suspect]
     Active Substance: DIAZEPAM
     Indication: Suicide attempt

REACTIONS (6)
  - Hypoglycaemia [Fatal]
  - Cardiogenic shock [Fatal]
  - Arrhythmic storm [Fatal]
  - Completed suicide [Fatal]
  - Toxicity to various agents [Fatal]
  - Overdose [Fatal]
